FAERS Safety Report 6075481-0 (Version None)
Quarter: 2009Q1

REPORT INFORMATION
  Report Type: 
  Country: None (occurrence: None)
  Receive Date: 20090212
  Receipt Date: 20090204
  Transmission Date: 20090719
  Serious: Yes (Hospitalization)
  Sender: FDA-Public Use
  Company Number: B0557511A

PATIENT
  Age: 58 Year
  Sex: Female

DRUGS (7)
  1. AMOXICILLIN AND CLAVULANATE POTASSIUM [Suspect]
     Route: 065
     Dates: start: 20090107, end: 20090109
  2. BRICANYL [Concomitant]
     Route: 065
     Dates: start: 20090107
  3. ATROVENT [Concomitant]
     Route: 065
     Dates: start: 20090107
  4. SOLUPRED [Concomitant]
     Route: 065
     Dates: start: 20090107
  5. PLAVIX [Concomitant]
     Route: 065
  6. KARDEGIC [Concomitant]
     Route: 065
  7. CRESTOR [Concomitant]
     Route: 065

REACTIONS (4)
  - ALANINE AMINOTRANSFERASE INCREASED [None]
  - ASPARTATE AMINOTRANSFERASE INCREASED [None]
  - BLOOD ALKALINE PHOSPHATASE INCREASED [None]
  - GAMMA-GLUTAMYLTRANSFERASE INCREASED [None]
